FAERS Safety Report 8975642 (Version 1)
Quarter: 2012Q4

REPORT INFORMATION
  Report Type: 
  Country: US (occurrence: US)
  Receive Date: 20121219
  Receipt Date: 20121219
  Transmission Date: 20130627
  Serious: No
  Sender: FDA-Public Use
  Company Number: US-PFIZER INC-2012318501

PATIENT
  Sex: Female

DRUGS (1)
  1. AZITHROMYCIN [Suspect]
     Indication: UPPER RESPIRATORY INFECTION
     Dosage: UNK
     Dates: start: 20121204, end: 201212

REACTIONS (4)
  - Throat irritation [Unknown]
  - Pleuritic pain [Unknown]
  - Dyspepsia [Unknown]
  - Malaise [Unknown]
